FAERS Safety Report 23034723 (Version 3)
Quarter: 2024Q1

REPORT INFORMATION
  Report Type: Report from Study
  Country: US (occurrence: US)
  Receive Date: 20231005
  Receipt Date: 20240307
  Transmission Date: 20240409
  Serious: Yes (Other)
  Sender: FDA-Public Use
  Company Number: US-ARGENX-2023-ARGX-US003286

PATIENT

DRUGS (2)
  1. VYVGART [Suspect]
     Active Substance: EFGARTIGIMOD ALFA-FCAB
     Indication: Myasthenia gravis
     Dosage: UNK
     Route: 042
     Dates: start: 20230412
  2. AZATHIOPRINE [Concomitant]
     Active Substance: AZATHIOPRINE
     Indication: Myasthenia gravis
     Dosage: UNK

REACTIONS (11)
  - Glaucoma [Unknown]
  - Hemiparesis [Unknown]
  - Synovial cyst [Unknown]
  - Muscular weakness [Unknown]
  - Nausea [Unknown]
  - Vomiting [Unknown]
  - Pain in extremity [Unknown]
  - Dropped shoulder syndrome [Unknown]
  - Back pain [Unknown]
  - Back injury [Unknown]
  - Varicose vein [Unknown]

NARRATIVE: CASE EVENT DATE: 20230601
